FAERS Safety Report 8790548 (Version 1)
Quarter: 2012Q4

REPORT INFORMATION
  Report Type: Spontaneous
  Country: US (occurrence: None)
  Receive Date: 20120912
  Receipt Date: 20120912
  Transmission Date: 20130627
  Serious: Yes (Hospitalization)
  Sender: FDA-Public Use
  Company Number: None

PATIENT
  Age: 12 Year
  Sex: Female
  Weight: 38 kg

DRUGS (1)
  1. ANAKINRA [Suspect]
     Indication: NEONATAL-ONSET MULTISYSTEMIC INFLAMMATORY DISEASE

REACTIONS (2)
  - Rash [None]
  - Pyrexia [None]
